FAERS Safety Report 4279415-0 (Version None)
Quarter: 2004Q1

REPORT INFORMATION
  Report Type: 
  Country: None (occurrence: None)
  Receive Date: 20040127
  Receipt Date: 20031104
  Transmission Date: 20041129
  Serious: No
  Sender: FDA-Public Use
  Company Number: US-BRISTOL-MYERS SQUIBB COMPANY-12426144

PATIENT
  Age: 36 Year
  Sex: Male
  Weight: 107 kg

DRUGS (8)
  1. DOVONEX [Suspect]
     Indication: PSORIASIS
     Dosage: 1 APPLICATION TWICE DAILY FOR A DURATION OF 4-5 MONTHS.
     Route: 061
  2. CLOBETASOL [Concomitant]
     Dosage: 1 APPLICATION TWICE WEEKLY
     Route: 061
  3. NAVANE [Concomitant]
  4. COGENTIN [Concomitant]
  5. ZOLOFT [Concomitant]
  6. LISINOPRIL [Concomitant]
  7. DYAZIDE [Concomitant]
  8. PEPCID AC [Concomitant]

REACTIONS (1)
  - DRUG INEFFECTIVE [None]
